FAERS Safety Report 6794033-8 (Version None)
Quarter: 2010Q2

REPORT INFORMATION
  Report Type: 
  Country: None (occurrence: None)
  Receive Date: 20100624
  Receipt Date: 20070129
  Transmission Date: 20101027
  Serious: No
  Sender: FDA-Public Use
  Company Number: US-PFIZER INC-ENC200700012

PATIENT
  Age: 76 Year
  Sex: Female
  Weight: 92.52 kg

DRUGS (54)
  1. ARGATROBAN [Suspect]
     Indication: THROMBOCYTOPENIA
     Dosage: 2.85 ML/HR
     Route: 042
     Dates: start: 20070115, end: 20070115
  2. ARGATROBAN [Suspect]
     Dosage: 2.2 MG/HR
     Route: 042
     Dates: start: 20060116, end: 20070116
  3. ARGATROBAN [Suspect]
     Dosage: 2.0 HR/ML
     Route: 042
     Dates: start: 20070116, end: 20070117
  4. ARGATROBAN [Suspect]
     Dosage: 2.1 MG/HR
     Dates: start: 20070117, end: 20070118
  5. ARGATROBAN [Suspect]
     Dosage: 2.0 MG/HR
     Route: 042
     Dates: start: 20070118, end: 20070119
  6. ARGATROBAN [Suspect]
     Dosage: 1.9 MG/HR
     Route: 042
     Dates: start: 20070119, end: 20070119
  7. ARGATROBAN [Suspect]
     Dosage: 1.7 MG/HR
     Route: 042
     Dates: start: 20070119, end: 20070120
  8. ARGATROBAN [Suspect]
     Dosage: 1.5 MG/HR
     Route: 042
     Dates: start: 20070120, end: 20070120
  9. ARGATROBAN [Suspect]
     Dosage: 1.7 MG/HR
     Route: 042
     Dates: start: 20070120, end: 20070120
  10. ARGATROBAN [Suspect]
     Dosage: 1.6 MG/HR
     Route: 042
     Dates: start: 20070120, end: 20070121
  11. ARGATROBAN [Suspect]
     Dosage: 1.4 MG/HR
     Route: 042
     Dates: start: 20070121, end: 20070121
  12. ARGATROBAN [Suspect]
     Dosage: 1.3 MG/HR
     Route: 042
     Dates: start: 20070121, end: 20070122
  13. ARGATROBAN [Suspect]
     Dosage: 1.2 MG/ML
     Route: 042
     Dates: start: 20070122, end: 20070123
  14. ARGATROBAN [Suspect]
     Dosage: 1.7 MG/HR
     Route: 042
     Dates: start: 20070123, end: 20070124
  15. ARGATROBAN [Suspect]
     Dosage: 1.3 MG/HR
     Route: 042
     Dates: start: 20070123, end: 20070101
  16. ARGATROBAN [Suspect]
     Dosage: 4 MG/HR
     Route: 042
     Dates: start: 20070128, end: 20070128
  17. ARGATROBAN [Suspect]
     Dosage: 3.7 MG/HR
     Route: 042
     Dates: start: 20070128, end: 20070129
  18. ARGATROBAN [Suspect]
     Dosage: 3.5 MG/HR
     Route: 042
     Dates: start: 20070129, end: 20070129
  19. ARGATROBAN [Suspect]
     Dosage: 3.7 MG/HR
     Route: 042
     Dates: start: 20070129, end: 20070129
  20. ARGATROBAN [Suspect]
     Dosage: 4.0 MG/HR
     Route: 042
     Dates: start: 20070129, end: 20070130
  21. ALPRAZOLAM [Concomitant]
  22. MAALOX [Concomitant]
  23. AMITRIPTYLINE HYDROCHLORIDE [Concomitant]
     Dates: start: 20070121
  24. AMLODIPINE [Concomitant]
  25. ATENOLOL [Concomitant]
  26. DIATX [Concomitant]
  27. COLCHICINE [Concomitant]
  28. DIPHENHYDRAMINE HYDROCHLORIDE [Concomitant]
  29. EPOGEN [Concomitant]
  30. FAMCICLOVIR [Concomitant]
  31. GUAIFENESIN [Concomitant]
  32. HALOPERIDOL [Concomitant]
  33. HYDROCODONE BITARTRATE [Concomitant]
  34. HYDROCODONE BITARTRATE + ACETAMINOPHEN [Concomitant]
  35. HYDROCORTISONE [Concomitant]
  36. INSULIN [Concomitant]
  37. IPRATROPIUM BROMIDE [Concomitant]
  38. LORATADINE [Concomitant]
  39. LORAZEPAM [Concomitant]
  40. MOMETASONE FUROATE [Concomitant]
  41. METOCLOPRAMIDE [Concomitant]
  42. MORPHINE [Concomitant]
  43. ORCIPRENALINE SULFATE [Concomitant]
  44. ESOMEPRAZOLE MAGNESIUM [Concomitant]
  45. VORICONAZOLE [Concomitant]
  46. AZTREONAM [Concomitant]
     Dates: end: 20070101
  47. NYSTATIN [Concomitant]
  48. PREDNISONE [Concomitant]
  49. BUDESONIDE [Concomitant]
  50. CYTARABINE [Concomitant]
     Dates: start: 20070106, end: 20070112
  51. DAUNORUBICIN HCL [Concomitant]
     Dates: start: 20070106, end: 20070106
  52. ENOXAPARIN [Concomitant]
     Dates: start: 20070101, end: 20070111
  53. VANCOMYCIN [Concomitant]
     Dates: start: 20070113, end: 20070129
  54. LISINOPRIL [Concomitant]

REACTIONS (1)
  - PROTHROMBIN TIME PROLONGED [None]
